FAERS Safety Report 4514943-1 (Version None)
Quarter: 2004Q4

REPORT INFORMATION
  Report Type: 
  Country: None (occurrence: None)
  Receive Date: 20041201
  Receipt Date: 20041125
  Transmission Date: 20050328
  Serious: Yes (Disabling)
  Sender: FDA-Public Use
  Company Number: 200421692GDDC

PATIENT
  Age: 56 Year
  Sex: Male
  Weight: 103 kg

DRUGS (5)
  1. INSULIN GLARGINE [Suspect]
     Indication: DIABETES MELLITUS NON-INSULIN-DEPENDENT
     Dates: start: 20030701
  2. HUMAN ACTRAPID [Concomitant]
  3. METFORMIN [Concomitant]
     Route: 048
  4. LOSARTAN [Concomitant]
     Route: 048
  5. SILDENAFIL [Concomitant]
     Route: 048

REACTIONS (1)
  - DYSAESTHESIA [None]
